FAERS Safety Report 9314507 (Version 1)
Quarter: 2013Q2

REPORT INFORMATION
  Report Type: Spontaneous
  Country: US (occurrence: US)
  Receive Date: 20130529
  Receipt Date: 20130529
  Transmission Date: 20140414
  Serious: No
  Sender: FDA-Public Use
  Company Number: US-PFIZER INC-2013159569

PATIENT
  Age: 80 Year
  Sex: Male

DRUGS (1)
  1. RAPAMUNE [Suspect]
     Indication: HEART TRANSPLANT
     Dosage: 2 MG, 1X/DAY
     Dates: start: 20130306

REACTIONS (2)
  - Malaise [Unknown]
  - Off label use [Unknown]
